FAERS Safety Report 14806920 (Version 2)
Quarter: 2019Q3

REPORT INFORMATION
  Report Type: Report from Study
  Country: US (occurrence: US)
  Receive Date: 20180425
  Receipt Date: 20190724
  Transmission Date: 20191004
  Serious: Yes (Hospitalization, Other)
  Sender: FDA-Public Use
  Company Number: US-ROCHE-2018644

PATIENT
  Age: 68 Year
  Sex: Male
  Weight: 113.5 kg

DRUGS (5)
  1. DALFAMPRIDINE. [Concomitant]
     Active Substance: DALFAMPRIDINE
     Indication: PRIMARY PROGRESSIVE MULTIPLE SCLEROSIS
  2. OCREVUS [Suspect]
     Active Substance: OCRELIZUMAB
     Indication: RELAPSING MULTIPLE SCLEROSIS
     Dosage: SECOND SPLIT DOSE?NEXT SCHEDULED 6 MONTHS ON 21/DEC/2017
     Route: 042
     Dates: start: 20170622
  3. OCREVUS [Suspect]
     Active Substance: OCRELIZUMAB
     Route: 042
  4. OCREVUS [Suspect]
     Active Substance: OCRELIZUMAB
     Route: 042
  5. OCREVUS [Suspect]
     Active Substance: OCRELIZUMAB
     Indication: PRIMARY PROGRESSIVE MULTIPLE SCLEROSIS
     Dosage: FIRST TREATMENT
     Route: 042
     Dates: start: 20170608

REACTIONS (7)
  - Cholecystitis infective [Recovered/Resolved]
  - Chest pain [Recovered/Resolved]
  - Nuclear magnetic resonance imaging thoracic abnormal [Recovered/Resolved]
  - Nausea [Recovered/Resolved]
  - Lung neoplasm malignant [Recovered/Resolved]
  - Cholelithiasis [Recovered/Resolved]
  - Nuclear magnetic resonance imaging thoracic abnormal [Unknown]

NARRATIVE: CASE EVENT DATE: 20190618
